FAERS Safety Report 21036761 (Version 4)
Quarter: 2022Q3

REPORT INFORMATION
  Report Type: Spontaneous
  Country: US (occurrence: US)
  Receive Date: 20220702
  Receipt Date: 20220807
  Transmission Date: 20221027
  Serious: Yes (Hospitalization)
  Sender: FDA-Public Use
  Company Number: US-UNITED THERAPEUTICS-UNT-2022-012831

PATIENT
  Sex: Male
  Weight: 74.83 kg

DRUGS (5)
  1. REMODULIN [Suspect]
     Active Substance: TREPROSTINIL
     Indication: Pulmonary arterial hypertension
     Dosage: UNK, CONTINUING
     Route: 058
     Dates: start: 20220309
  2. REMODULIN [Suspect]
     Active Substance: TREPROSTINIL
     Dosage: 0.006 ?G/KG, CONTINUING
     Route: 058
     Dates: start: 2022
  3. REMODULIN [Suspect]
     Active Substance: TREPROSTINIL
     Dosage: 0.012 ?G/KG, CONTINUING
     Route: 058
     Dates: start: 2022
  4. AMBRISENTAN [Concomitant]
     Active Substance: AMBRISENTAN
     Indication: Product used for unknown indication
     Dosage: UNK
     Route: 065
  5. TADALAFIL [Concomitant]
     Active Substance: TADALAFIL
     Indication: Product used for unknown indication
     Dosage: UNK
     Route: 065

REACTIONS (12)
  - Infusion site pain [Unknown]
  - Infusion site erythema [Unknown]
  - Infusion site infection [Unknown]
  - Arthralgia [Unknown]
  - Infusion site extravasation [Unknown]
  - Device dislocation [Recovered/Resolved]
  - Dermatitis contact [Unknown]
  - Infusion site haemorrhage [Unknown]
  - Infusion site injury [Unknown]
  - Infusion site swelling [Unknown]
  - Muscle spasms [Unknown]
  - Infusion site discolouration [Unknown]

NARRATIVE: CASE EVENT DATE: 20220101
